FAERS Safety Report 4901614-2 (Version None)
Quarter: 2006Q1

REPORT INFORMATION
  Report Type: 
  Country: None (occurrence: None)
  Receive Date: 20060206
  Receipt Date: 20050627
  Transmission Date: 20060701
  Serious: Yes (Life-Threatening)
  Sender: FDA-Public Use
  Company Number: US-BRISTOL-MYERS SQUIBB COMPANY-13017017

PATIENT
  Age: 60 Year
  Sex: Female
  Weight: 56 kg

DRUGS (7)
  1. TAXOL [Suspect]
     Indication: BREAST CANCER
     Route: 042
     Dates: start: 20050616, end: 20050616
  2. KYTRIL [Concomitant]
     Indication: PREMEDICATION
     Route: 042
  3. DECADRON PHOSPHATE [Concomitant]
     Indication: PREMEDICATION
     Route: 042
  4. GLUCOPHAGE [Concomitant]
  5. ACIPHEX [Concomitant]
  6. LEVAQUIN [Concomitant]
  7. PYRIDIUM [Concomitant]

REACTIONS (1)
  - ANAPHYLACTIC REACTION [None]
